FAERS Safety Report 9437492 (Version 1)
Quarter: 2013Q3

REPORT INFORMATION
  Report Type: Spontaneous
  Country: ES (occurrence: ES)
  Receive Date: 20130802
  Receipt Date: 20130802
  Transmission Date: 20140515
  Serious: Yes (Hospitalization)
  Sender: FDA-Public Use
  Company Number: ES-BAYER-2013-090139

PATIENT
  Age: 80 Year
  Sex: Male

DRUGS (9)
  1. ADIRO 100 [Suspect]
     Indication: ACUTE MYOCARDIAL INFARCTION
     Dosage: 100 MG, QD (START DATE: 20 YEARS)
     Route: 048
     Dates: start: 1993
  2. ANGIOX [Interacting]
     Indication: ACUTE MYOCARDIAL INFARCTION
     Dosage: 250 MG, UNK
     Route: 042
     Dates: start: 20121228, end: 20121228
  3. ARIXTRA [Interacting]
     Indication: ACUTE MYOCARDIAL INFARCTION
     Dosage: 2.5 MG, QD
     Route: 058
     Dates: start: 20121228, end: 20130101
  4. PRASUGREL [Interacting]
     Indication: ACUTE MYOCARDIAL INFARCTION
     Dosage: 10 MG, QD
     Route: 048
     Dates: start: 20121228
  5. REOPRO [Interacting]
     Indication: ACUTE MYOCARDIAL INFARCTION
     Dosage: 10 MG, UNK
     Route: 042
     Dates: start: 20121228, end: 20121228
  6. LIDOCAINA [Concomitant]
     Indication: ARRHYTHMIA
     Dosage: 3000 MG, QD
     Route: 041
     Dates: start: 20121228, end: 20121229
  7. NOREPINEPHRINE HYDROCHLORIDE [Concomitant]
     Indication: HYPOTENSION
     Dosage: 30 MG, QD
     Route: 041
     Dates: start: 20121228, end: 20121229
  8. PROPOFOL [Concomitant]
     Indication: SEDATION
     Dosage: 1000 MG, QD
     Route: 041
     Dates: start: 20121228, end: 20121229
  9. PROPOFOL [Concomitant]
     Indication: ACUTE MYOCARDIAL INFARCTION

REACTIONS (3)
  - Upper gastrointestinal haemorrhage [Recovered/Resolved]
  - Haematuria [Recovered/Resolved]
  - Hypocoagulable state [Recovered/Resolved]
